FAERS Safety Report 9285371 (Version 1)
Quarter: 2013Q2

REPORT INFORMATION
  Report Type: Spontaneous
  Country: US (occurrence: US)
  Receive Date: 20130513
  Receipt Date: 20130513
  Transmission Date: 20140414
  Serious: Yes (Other)
  Sender: FDA-Public Use
  Company Number: US-FRI-1000044991

PATIENT
  Age: 44 Year
  Sex: Female

DRUGS (1)
  1. VIIBRYD [Suspect]
     Route: 048
     Dates: start: 2012, end: 201210

REACTIONS (1)
  - Suicidal ideation [Recovered/Resolved]
